FAERS Safety Report 21638637 (Version 1)
Quarter: 2022Q4

REPORT INFORMATION
  Report Type: Report from Study
  Country: US (occurrence: US)
  Receive Date: 20221124
  Receipt Date: 20221124
  Transmission Date: 20230113
  Serious: No
  Sender: FDA-Public Use
  Company Number: US-ABBVIE-22K-163-4471204-00

PATIENT
  Sex: Female
  Weight: 81.192 kg

DRUGS (5)
  1. HUMIRA [Suspect]
     Active Substance: ADALIMUMAB
     Indication: Crohn^s disease
     Dosage: CITRATE FREE
     Route: 058
     Dates: start: 20220604, end: 20220715
  2. ATORVASTATIN [Concomitant]
     Active Substance: ATORVASTATIN
     Indication: Blood cholesterol increased
     Dosage: FORM STRENGTH: 40 MG
     Route: 048
  3. ELIQUIS [Concomitant]
     Active Substance: APIXABAN
     Indication: Atrial fibrillation
     Dosage: FORM STRENGTH- 5 MG
     Route: 048
  4. FAMOTIDINE [Concomitant]
     Active Substance: FAMOTIDINE
     Indication: Gastrooesophageal reflux disease
     Dosage: FORM STRENGTH:20 MG
     Route: 048
  5. METOPROLOL [Concomitant]
     Active Substance: METOPROLOL
     Indication: Atrial fibrillation
     Dosage: FORM STRENGTH: 25 MG
     Route: 048
     Dates: start: 20220719

REACTIONS (4)
  - Dizziness [Recovered/Resolved with Sequelae]
  - Balance disorder [Unknown]
  - Decreased appetite [Unknown]
  - Fall [Unknown]

NARRATIVE: CASE EVENT DATE: 20220101
